FAERS Safety Report 15227272 (Version 3)
Quarter: 2018Q3

REPORT INFORMATION
  Report Type: Report from Study
  Country: AT (occurrence: AT)
  Receive Date: 20180801
  Receipt Date: 20180905
  Transmission Date: 20181010
  Serious: Yes (Hospitalization)
  Sender: FDA-Public Use
  Company Number: AT-INCYTE CORPORATION-2018IN007625

PATIENT

DRUGS (6)
  1. ASPIRIN                            /00002701/ [Concomitant]
     Active Substance: ASPIRIN
     Indication: PRODUCT USED FOR UNKNOWN INDICATION
     Dosage: UNK
     Route: 065
  2. JAKAVI [Suspect]
     Active Substance: RUXOLITINIB
     Dosage: 10 MG, UNK
     Route: 065
     Dates: start: 20171218, end: 20180103
  3. JAKAVI [Suspect]
     Active Substance: RUXOLITINIB
     Dosage: 10 MG, UNK
     Route: 065
     Dates: start: 20180131
  4. THROMBO ASS [Concomitant]
     Active Substance: ASPIRIN
     Indication: THROMBOSIS PROPHYLAXIS
     Dosage: 100 MG, UNK
     Route: 065
     Dates: start: 20010910
  5. JAKAVI [Suspect]
     Active Substance: RUXOLITINIB
     Dosage: 15 MG, UNK
     Route: 065
     Dates: start: 20180104, end: 20180130
  6. JAKAVI [Suspect]
     Active Substance: RUXOLITINIB
     Indication: POLYCYTHAEMIA VERA
     Dosage: 5 MG, BID
     Route: 048
     Dates: start: 20171218

REACTIONS (16)
  - Haemoglobin decreased [Unknown]
  - Activated partial thromboplastin time prolonged [Unknown]
  - Platelet count abnormal [Unknown]
  - Red blood cell abnormality [Unknown]
  - Back pain [Recovered/Resolved]
  - White blood cell disorder [Unknown]
  - Liver function test abnormal [Unknown]
  - Spinal pain [Unknown]
  - Angiopathy [Not Recovered/Not Resolved]
  - Pruritus [Not Recovered/Not Resolved]
  - Muscle haemorrhage [Recovered/Resolved]
  - Muscle swelling [Unknown]
  - Swelling [Unknown]
  - Blood creatinine increased [Unknown]
  - Blood urea increased [Unknown]
  - Sciatica [Unknown]

NARRATIVE: CASE EVENT DATE: 20180709
